FAERS Safety Report 24607869 (Version 1)
Quarter: 2024Q4

REPORT INFORMATION
  Report Type: Spontaneous
  Country: GB (occurrence: GB)
  Receive Date: 20241112
  Receipt Date: 20241112
  Transmission Date: 20250114
  Serious: Yes (Other)
  Sender: USV PRIVATE LIMITED
  Company Number: None

PATIENT
  Age: 45 Year
  Sex: Female

DRUGS (16)
  1. ZOLEDRONIC ACID [Suspect]
     Active Substance: ZOLEDRONIC ACID
     Indication: Osteoporosis
  2. COCODAMOL [Concomitant]
     Active Substance: ACETAMINOPHEN\CODEINE PHOSPHATE
  3. CODEINE [Concomitant]
     Active Substance: CODEINE
  4. DIORALYTE [Concomitant]
     Active Substance: CITRIC ACID MONOHYDRATE\DEXTROSE\POTASSIUM CATION\SODIUM CHLORIDE
  5. ONDANSETRON [Concomitant]
     Active Substance: ONDANSETRON
  6. ZOPICLONE [Concomitant]
     Active Substance: ZOPICLONE
  7. CALCIUM CARBONATE\CHOLECALCIFEROL [Concomitant]
     Active Substance: CALCIUM CARBONATE\CHOLECALCIFEROL
  8. CABERGOLINE [Concomitant]
     Active Substance: CABERGOLINE
  9. CENOBAMATE [Concomitant]
     Active Substance: CENOBAMATE
  10. FOLIC ACID [Concomitant]
     Active Substance: FOLIC ACID
  11. LACOSAMIDE [Concomitant]
     Active Substance: LACOSAMIDE
  12. LAMOTRIGINE [Concomitant]
     Active Substance: LAMOTRIGINE
  13. POLYETHYLENE GLYCOLS [Concomitant]
     Active Substance: POLYETHYLENE GLYCOLS
  14. OMEPRAZOLE [Concomitant]
     Active Substance: OMEPRAZOLE
  15. PROPRANOLOL [Concomitant]
     Active Substance: PROPRANOLOL HYDROCHLORIDE
  16. RISEDRONATE SODIUM [Concomitant]
     Active Substance: RISEDRONATE SODIUM

REACTIONS (2)
  - Pain [Unknown]
  - Petit mal epilepsy [Unknown]
